FAERS Safety Report 17142582 (Version 1)
Quarter: 2019Q4

REPORT INFORMATION
  Report Type: Spontaneous
  Country: US (occurrence: US)
  Receive Date: 20191211
  Receipt Date: 20191211
  Transmission Date: 20200122
  Serious: Yes (Hospitalization)
  Sender: FDA-Public Use
  Company Number: US-AMNEAL PHARMACEUTICALS-2019-AMRX-03086

PATIENT
  Sex: Male

DRUGS (1)
  1. RANITIDINE. [Suspect]
     Active Substance: RANITIDINE
     Indication: HYPERCHLORHYDRIA
     Dosage: 300 MILLIGRAM, BEDTIME
     Route: 048

REACTIONS (5)
  - Asthenia [Unknown]
  - Nausea [Unknown]
  - Back pain [Unknown]
  - Malaise [Unknown]
  - Vomiting [Unknown]
